FAERS Safety Report 6059000-0 (Version None)
Quarter: 2009Q1

REPORT INFORMATION
  Report Type: 
  Country: None (occurrence: None)
  Receive Date: 20090130
  Receipt Date: 20090127
  Transmission Date: 20090719
  Serious: Yes (Death)
  Sender: FDA-Public Use
  Company Number: A0765789A

PATIENT
  Age: 77 Year
  Sex: Female

DRUGS (2)
  1. SERETIDE [Suspect]
     Dosage: 2PUFF TWICE PER DAY
     Route: 055
     Dates: start: 20081219, end: 20090118
  2. THEOPHYLLINE [Concomitant]
     Dosage: 1TAB TWICE PER DAY
     Route: 048
     Dates: start: 20081209, end: 20090118

REACTIONS (3)
  - EPILEPSY [None]
  - RESPIRATORY ARREST [None]
  - SHOCK [None]
